FAERS Safety Report 9726044 (Version 1)
Quarter: 2013Q4

REPORT INFORMATION
  Report Type: Spontaneous
  Country: IT (occurrence: None)
  Receive Date: 20131129
  Receipt Date: 20131129
  Transmission Date: 20140711
  Serious: Yes (Death)
  Sender: FDA-Public Use
  Company Number: 2013P1021507

PATIENT
  Sex: 0

DRUGS (3)
  1. ALFUZOSIN [Suspect]
  2. CLARITHROMYCIN [Suspect]
  3. FLUCONAZOLE [Suspect]

REACTIONS (2)
  - Cardiac arrest [None]
  - Drug interaction [None]
